FAERS Safety Report 6720243-1 (Version None)
Quarter: 2010Q2

REPORT INFORMATION
  Report Type: 
  Country: None (occurrence: None)
  Receive Date: 20100511
  Receipt Date: 20100506
  Transmission Date: 20101027
  Serious: Yes (Life-Threatening, Hospitalization)
  Sender: FDA-Public Use
  Company Number: PHHY2010KR29800

PATIENT
  Age: 49 Year
  Sex: Male

DRUGS (1)
  1. GLEEVEC [Suspect]
     Indication: CHRONIC MYELOID LEUKAEMIA

REACTIONS (7)
  - ACUTE HEPATIC FAILURE [None]
  - ASCITES [None]
  - ENCEPHALOPATHY [None]
  - HEPATITIS B [None]
  - JAUNDICE [None]
  - LIVER TRANSPLANT [None]
  - PERITONITIS BACTERIAL [None]
